FAERS Safety Report 9719277 (Version 3)
Quarter: 2014Q1

REPORT INFORMATION
  Report Type: Spontaneous
  Country: US (occurrence: US)
  Receive Date: 20131127
  Receipt Date: 20140131
  Transmission Date: 20141002
  Serious: Yes (Hospitalization)
  Sender: FDA-Public Use
  Company Number: US-TAKEDA-2013TUS002600

PATIENT
  Sex: 0

DRUGS (3)
  1. DEXILANT [Suspect]
     Indication: GASTROOESOPHAGEAL REFLUX DISEASE
     Dosage: 60 MG, QD
     Route: 048
     Dates: start: 20130822, end: 20130827
  2. DEXILANT [Suspect]
     Dosage: 60 MG, QD
     Route: 048
     Dates: start: 201309, end: 201309
  3. SYNTHROID [Concomitant]
     Indication: HYPOTHYROIDISM
     Dosage: 100 MG, QD
     Route: 048
     Dates: start: 2007

REACTIONS (2)
  - Gallbladder operation [Recovered/Resolved]
  - Hypersensitivity [Recovered/Resolved]
